FAERS Safety Report 25023627 (Version 1)
Quarter: 2025Q1

REPORT INFORMATION
  Report Type: Spontaneous
  Country: US (occurrence: US)
  Receive Date: 20250228
  Receipt Date: 20250228
  Transmission Date: 20250409
  Serious: No
  Sender: ABBVIE
  Company Number: US-ABBVIE-6154587

PATIENT
  Sex: Female

DRUGS (1)
  1. CYCLOSPORINE [Suspect]
     Active Substance: CYCLOSPORINE
     Indication: Product used for unknown indication
     Dosage: 1-DROP BOTH EYES?FORM STRENGTH- 0.05%
     Route: 047
     Dates: start: 20250210, end: 20250210

REACTIONS (6)
  - Ocular discomfort [Unknown]
  - Lacrimation increased [Unknown]
  - Diplopia [Unknown]
  - Vision blurred [Unknown]
  - Eye irritation [Unknown]
  - Eye swelling [Unknown]

NARRATIVE: CASE EVENT DATE: 20250210
